FAERS Safety Report 8206055-0 (Version None)
Quarter: 2012Q1

REPORT INFORMATION
  Report Type: 
  Country: None (occurrence: None)
  Receive Date: 20120309
  Receipt Date: 20120228
  Transmission Date: 20120608
  Serious: Yes (Other)
  Sender: FDA-Public Use
  Company Number: B0786067A

PATIENT
  Sex: Female

DRUGS (5)
  1. AMOXICILLIN AND CLAVULANATE POTASSIUM [Suspect]
     Dosage: TRANSPLACENTARY
     Route: 064
  2. ACETAMINOPHEN [Suspect]
     Dosage: TRANSPLACENTARY
     Route: 064
  3. RANITIDINE HCL [Suspect]
     Dosage: TRANSPLACENTARY
  4. METRONIDAZOLE [Suspect]
     Dosage: TRANSPLACENTARY
     Route: 064
  5. DICLOFENAC SODIUM [Suspect]
     Dosage: 50 MG/ TWICE PER DAY/ TRANSPLACENTAL
     Route: 064

REACTIONS (8)
  - RENAL FAILURE NEONATAL [None]
  - MATERNAL DRUGS AFFECTING FOETUS [None]
  - CAESAREAN SECTION [None]
  - HYPERKALAEMIA [None]
  - PLACENTAL INSUFFICIENCY [None]
  - OLIGOHYDRAMNIOS [None]
  - METABOLIC ACIDOSIS [None]
  - PREMATURE BABY [None]
